FAERS Safety Report 20951628 (Version 3)
Quarter: 2022Q3

REPORT INFORMATION
  Report Type: Spontaneous
  Country: BR (occurrence: BR)
  Receive Date: 20220613
  Receipt Date: 20220708
  Transmission Date: 20221027
  Serious: Yes (Other)
  Sender: FDA-Public Use
  Company Number: BR-PFIZER INC-202200821961

PATIENT
  Age: 64 Year
  Sex: Female
  Weight: 58 kg

DRUGS (7)
  1. XALATAN [Suspect]
     Active Substance: LATANOPROST
     Indication: Glaucoma
     Dosage: 1 DROP IN THE RIGHT EYE
     Route: 047
     Dates: start: 2006
  2. XALATAN [Suspect]
     Active Substance: LATANOPROST
     Dosage: 1 DROP IN THE RIGHT EYE
     Route: 047
  3. XALATAN [Suspect]
     Active Substance: LATANOPROST
     Dosage: 1 DROP IN THE RIGHT EYE
     Route: 047
  4. LIPITOR [Concomitant]
     Active Substance: ATORVASTATIN CALCIUM
     Dosage: UNK
  5. NORVASC [Concomitant]
     Active Substance: AMLODIPINE BESYLATE
     Dosage: UNK
  6. OLMESARTAN MEDOXOMIL [Concomitant]
     Active Substance: OLMESARTAN MEDOXOMIL
     Dosage: UNK
  7. HYABAK [ACTINOQUINOL;HYALURONATE SODIUM] [Concomitant]
     Dosage: UNK

REACTIONS (12)
  - Cataract [Unknown]
  - Glaucoma [Unknown]
  - Skin disorder [Unknown]
  - Visual impairment [Unknown]
  - Headache [Unknown]
  - Cough [Unknown]
  - Throat clearing [Unknown]
  - COVID-19 [Unknown]
  - Cardiovascular disorder [Unknown]
  - Thyroid disorder [Unknown]
  - Incorrect dose administered [Unknown]
  - Product delivery mechanism issue [Unknown]

NARRATIVE: CASE EVENT DATE: 20090101
